FAERS Safety Report 9403755 (Version 1)
Quarter: 2013Q3

REPORT INFORMATION
  Report Type: Spontaneous
  Country: PT (occurrence: None)
  Receive Date: 20130712
  Receipt Date: 20130712
  Transmission Date: 20140515
  Serious: Yes (Hospitalization)
  Sender: FDA-Public Use
  Company Number: NPIL/SEV/H/2013/65

PATIENT
  Age: 48 Year
  Sex: Female

DRUGS (3)
  1. SEVOFLURANE [Suspect]
     Indication: ANAESTHESIA
     Route: 055
  2. FENTANYL [Suspect]
  3. PROPOFOL [Suspect]

REACTIONS (4)
  - Blood pressure increased [None]
  - Headache [None]
  - Dry mouth [None]
  - Flushing [None]
